FAERS Safety Report 6589806-0 (Version None)
Quarter: 2010Q1

REPORT INFORMATION
  Report Type: 
  Country: None (occurrence: None)
  Receive Date: 20100212
  Receipt Date: 20100129
  Transmission Date: 20100710
  Serious: Yes (Hospitalization)
  Sender: FDA-Public Use
  Company Number: AMAG201000033

PATIENT
  Age: 67 Year
  Sex: Female
  Weight: 136 kg

DRUGS (18)
  1. FERAHEME [Suspect]
     Indication: IRON DEFICIENCY ANAEMIA
     Dosage: 11 ML, SINGLE (330 MG, PARTIAL DOSE), INTRAVENOUS
     Route: 042
     Dates: start: 20100115, end: 20100115
  2. ASPIRINI (ACETYLSALICYLIC ACID) [Concomitant]
  3. ATENOLOL [Concomitant]
  4. CYMBALTA [Concomitant]
  5. DARVOCET A500 (DEXTROPROPOXYPHENE NAPSILATE, PARACETAMOL) [Concomitant]
  6. DOCUSATE (DOCUSATE) [Concomitant]
  7. DRISDOL [Concomitant]
  8. FERROUS GLUCONATE (FERROUS GLUCONATE) [Concomitant]
  9. FUROSEMIDE (FUROSEMIDE SODIUM) [Concomitant]
  10. HYDRALAZINE HCL [Concomitant]
  11. ISOSORBIDE (ISOSORBIDE) [Concomitant]
  12. KLOR-CON [Concomitant]
  13. LANTUS OPTIPEN (INSULIN GLARGINE) [Concomitant]
  14. LIPITOR [Concomitant]
  15. NIACIN [Concomitant]
  16. NOVOLIN 70/30 [Concomitant]
  17. RANITIDINE HCL [Concomitant]
  18. TYLENOL ARTHRITIS (PARACETAMOL) [Concomitant]

REACTIONS (23)
  - ANAEMIA [None]
  - BLOOD GLUCOSE DECREASED [None]
  - BLOOD GLUCOSE INCREASED [None]
  - BLOOD PRESSURE SYSTOLIC DECREASED [None]
  - BRADYPHRENIA [None]
  - BURNING SENSATION [None]
  - CARDIAC ARREST [None]
  - DIZZINESS [None]
  - FATIGUE [None]
  - FLUSHING [None]
  - FOAMING AT MOUTH [None]
  - GASTROINTESTINAL HAEMORRHAGE [None]
  - HAEMOPTYSIS [None]
  - ILEUS PARALYTIC [None]
  - INTESTINAL ISCHAEMIA [None]
  - JAW DISORDER [None]
  - MUSCULOSKELETAL DISCOMFORT [None]
  - NAUSEA [None]
  - PALLOR [None]
  - PNEUMONIA [None]
  - SYNCOPE [None]
  - UNRESPONSIVE TO STIMULI [None]
  - URINARY TRACT INFECTION [None]
